FAERS Safety Report 23207593 (Version 1)
Quarter: 2023Q4

REPORT INFORMATION
  Report Type: Report from Study
  Country: US (occurrence: US)
  Receive Date: 20231120
  Receipt Date: 20231120
  Transmission Date: 20240109
  Serious: No
  Sender: FDA-Public Use
  Company Number: US-AstraZeneca-CH-00504526A

PATIENT

DRUGS (4)
  1. ULTOMIRIS [Suspect]
     Active Substance: RAVULIZUMAB-CWVZ
     Indication: Product used for unknown indication
     Dosage: UNK
     Route: 065
  2. Immunoglobulin [Concomitant]
     Indication: Product used for unknown indication
  3. PREDNISONE [Concomitant]
     Active Substance: PREDNISONE
     Indication: Product used for unknown indication
  4. MODAFINIL [Concomitant]
     Active Substance: MODAFINIL
     Indication: Product used for unknown indication

REACTIONS (10)
  - Symptom recurrence [Unknown]
  - Hypoaesthesia [Unknown]
  - Dyspnoea exertional [Unknown]
  - Eyelid ptosis [Unknown]
  - Diplopia [Unknown]
  - Dysphonia [Unknown]
  - Cough [Unknown]
  - Bone pain [Unknown]
  - Swelling [Unknown]
  - Balance disorder [Unknown]
